FAERS Safety Report 10203926 (Version 1)
Quarter: 2014Q2

REPORT INFORMATION
  Report Type: Spontaneous
  Country: US (occurrence: None)
  Receive Date: 20140527
  Receipt Date: 20140527
  Transmission Date: 20141212
  Serious: Yes (Death)
  Sender: FDA-Public Use
  Company Number: None

PATIENT
  Age: 41 Year
  Sex: Male

DRUGS (2)
  1. DIPHENHYDRAMINE [Suspect]
     Indication: PRURITUS
     Route: 048
     Dates: start: 20120215, end: 20120215
  2. CLINDAMYCIN [Concomitant]

REACTIONS (4)
  - Confusional state [None]
  - Apnoea [None]
  - Cyanosis [None]
  - Pulseless electrical activity [None]
